FAERS Safety Report 8423118-5 (Version None)
Quarter: 2012Q2

REPORT INFORMATION
  Report Type: 
  Country: None (occurrence: None)
  Receive Date: 20120608
  Receipt Date: 20120530
  Transmission Date: 20120825
  Serious: Yes (Other)
  Sender: FDA-Public Use
  Company Number: FR-ASTRAZENECA-2012SE36501

PATIENT
  Age: 64 Year
  Sex: Female

DRUGS (1)
  1. ARIMIDEX [Suspect]
     Indication: BREAST CANCER
     Route: 048
     Dates: start: 20090827, end: 20120305

REACTIONS (4)
  - HYPERTENSION [None]
  - ARTHRALGIA [None]
  - PHOTOSENSITIVITY REACTION [None]
  - HYPERCHOLESTEROLAEMIA [None]
